FAERS Safety Report 6642388-7 (Version None)
Quarter: 2010Q1

REPORT INFORMATION
  Report Type: 
  Country: None (occurrence: None)
  Receive Date: 20100316
  Receipt Date: 20100302
  Transmission Date: 20100710
  Serious: Yes (Hospitalization, Other)
  Sender: FDA-Public Use
  Company Number: 2008-187499-NL

PATIENT
  Age: 23 Year
  Sex: Female
  Weight: 86.1834 kg

DRUGS (4)
  1. NUVARING [Suspect]
     Indication: CONTRACEPTION
     Dosage: 1 DF
     Dates: start: 20050131, end: 20050809
  2. NUVARING [Suspect]
     Indication: MENORRHAGIA
     Dosage: 1 DF
     Dates: start: 20050131, end: 20050809
  3. PRILOSEC [Concomitant]
  4. DOXYCYCLINE [Concomitant]

REACTIONS (19)
  - ABORTION SPONTANEOUS [None]
  - ANKLE FRACTURE [None]
  - BREAST MASS [None]
  - DEEP VEIN THROMBOSIS [None]
  - DYSMENORRHOEA [None]
  - FURUNCLE [None]
  - HOMANS' SIGN [None]
  - HYPEREMESIS GRAVIDARUM [None]
  - JOINT INJURY [None]
  - JOINT RANGE OF MOTION DECREASED [None]
  - LOBAR PNEUMONIA [None]
  - MENORRHAGIA [None]
  - MENSTRUATION IRREGULAR [None]
  - MUSCULOSKELETAL STIFFNESS [None]
  - OSTEOMALACIA [None]
  - PAIN [None]
  - PELVIC PAIN [None]
  - VAGINITIS BACTERIAL [None]
  - VULVOVAGINAL CANDIDIASIS [None]
